APPROVED DRUG PRODUCT: BONSITY
Active Ingredient: TERIPARATIDE
Strength: 0.56MG/2.24ML (0.25MG/ML)
Dosage Form/Route: SOLUTION;SUBCUTANEOUS
Application: N211939 | Product #001
Applicant: ALVOGEN INC
Approved: Oct 4, 2019 | RLD: No | RS: No | Type: RX